FAERS Safety Report 4614768-2 (Version None)
Quarter: 2005Q1

REPORT INFORMATION
  Report Type: 
  Country: None (occurrence: None)
  Receive Date: 20050322
  Receipt Date: 20050203
  Transmission Date: 20050727
  Serious: Yes (Other)
  Sender: FDA-Public Use
  Company Number: ES-BRISTOL-MYERS SQUIBB COMPANY-12849329

PATIENT
  Age: 50 Year
  Sex: Male

DRUGS (5)
  1. REYATAZ [Suspect]
     Indication: HIV INFECTION
     Route: 048
     Dates: start: 20041215, end: 20041221
  2. DIDANOSINE [Concomitant]
     Dates: start: 20041001
  3. RITONAVIR [Concomitant]
     Dates: start: 20041215, end: 20041221
  4. LAMIVUDINE [Concomitant]
     Dosage: THERAPY DISCONTINUED AND LATER RE-STARTED
     Dates: start: 20041001
  5. NELFINAVIR [Concomitant]
     Dates: start: 20041001, end: 20041215

REACTIONS (6)
  - EPISTAXIS [None]
  - EXANTHEM [None]
  - PYREXIA [None]
  - RASH [None]
  - RECTAL HAEMORRHAGE [None]
  - VOMITING [None]
